FAERS Safety Report 5381757-2 (Version None)
Quarter: 2007Q2

REPORT INFORMATION
  Report Type: 
  Country: None (occurrence: None)
  Receive Date: 20070629
  Receipt Date: 20070224
  Transmission Date: 20071010
  Serious: Yes (Hospitalization)
  Sender: FDA-Public Use
  Company Number: US200702004115

PATIENT
  Age: 69 Year
  Sex: Male

DRUGS (7)
  1. HUMALOG [Suspect]
     Indication: DIABETES MELLITUS
  2. BYETTA [Concomitant]
  3. LANTUS [Concomitant]
  4. VASOTEC [Concomitant]
  5. TENORMIN [Concomitant]
  6. LASIX [Concomitant]
  7. HYDROCHLOROTHIAZIDE [Concomitant]

REACTIONS (2)
  - INTESTINAL ISCHAEMIA [None]
  - INTESTINAL PERFORATION [None]
